FAERS Safety Report 25083657 (Version 1)
Quarter: 2025Q1

REPORT INFORMATION
  Report Type: Report from Study
  Country: US (occurrence: US)
  Receive Date: 20250317
  Receipt Date: 20250317
  Transmission Date: 20250408
  Serious: Yes (Other)
  Sender: MYLAN
  Company Number: US-MYLANLABS-2025M1021484

PATIENT
  Sex: Female

DRUGS (20)
  1. EFFEXOR [Suspect]
     Active Substance: VENLAFAXINE HYDROCHLORIDE
     Indication: Generalised anxiety disorder
  2. EFFEXOR [Suspect]
     Active Substance: VENLAFAXINE HYDROCHLORIDE
     Route: 065
  3. EFFEXOR [Suspect]
     Active Substance: VENLAFAXINE HYDROCHLORIDE
     Route: 065
  4. EFFEXOR [Suspect]
     Active Substance: VENLAFAXINE HYDROCHLORIDE
  5. REXULTI [Suspect]
     Active Substance: BREXPIPRAZOLE
     Indication: Generalised anxiety disorder
  6. REXULTI [Suspect]
     Active Substance: BREXPIPRAZOLE
  7. REXULTI [Suspect]
     Active Substance: BREXPIPRAZOLE
     Route: 065
  8. REXULTI [Suspect]
     Active Substance: BREXPIPRAZOLE
     Route: 065
  9. REXULTI [Suspect]
     Active Substance: BREXPIPRAZOLE
  10. REXULTI [Suspect]
     Active Substance: BREXPIPRAZOLE
  11. REXULTI [Suspect]
     Active Substance: BREXPIPRAZOLE
     Route: 065
  12. REXULTI [Suspect]
     Active Substance: BREXPIPRAZOLE
     Route: 065
  13. REXULTI [Suspect]
     Active Substance: BREXPIPRAZOLE
  14. REXULTI [Suspect]
     Active Substance: BREXPIPRAZOLE
     Route: 065
  15. REXULTI [Suspect]
     Active Substance: BREXPIPRAZOLE
  16. REXULTI [Suspect]
     Active Substance: BREXPIPRAZOLE
     Route: 065
  17. WELLBUTRIN [Suspect]
     Active Substance: BUPROPION HYDROCHLORIDE
     Indication: Generalised anxiety disorder
  18. WELLBUTRIN [Suspect]
     Active Substance: BUPROPION HYDROCHLORIDE
     Route: 065
  19. WELLBUTRIN [Suspect]
     Active Substance: BUPROPION HYDROCHLORIDE
     Route: 065
  20. WELLBUTRIN [Suspect]
     Active Substance: BUPROPION HYDROCHLORIDE

REACTIONS (8)
  - Diabetes mellitus [Unknown]
  - Depression [Unknown]
  - Crying [Unknown]
  - Blood cholesterol abnormal [Unknown]
  - Body temperature increased [Unknown]
  - Malaise [Unknown]
  - Asthenia [Unknown]
  - Irritability [Unknown]
